FAERS Safety Report 8407798-6 (Version None)
Quarter: 2012Q2

REPORT INFORMATION
  Report Type: 
  Country: None (occurrence: None)
  Receive Date: 20120604
  Receipt Date: 20120529
  Transmission Date: 20120825
  Serious: Yes (Other)
  Sender: FDA-Public Use
  Company Number: BE-GLAXOSMITHKLINE-B0805208A

PATIENT
  Sex: Female

DRUGS (1)
  1. POTIGA [Suspect]
     Indication: PRODUCT USED FOR UNKNOWN INDICATION
     Dosage: 400MG THREE TIMES PER DAY
     Route: 065

REACTIONS (10)
  - HALLUCINATION [None]
  - DISTURBANCE IN ATTENTION [None]
  - APHASIA [None]
  - COORDINATION ABNORMAL [None]
  - MYOCLONUS [None]
  - NAUSEA [None]
  - DYSARTHRIA [None]
  - BALANCE DISORDER [None]
  - ATAXIA [None]
  - VISUAL IMPAIRMENT [None]
